FAERS Safety Report 18535566 (Version 1)
Quarter: 2020Q4

REPORT INFORMATION
  Report Type: Spontaneous
  Country: US (occurrence: US)
  Receive Date: 20201123
  Receipt Date: 20201123
  Transmission Date: 20210114
  Serious: No
  Sender: FDA-Public Use
  Company Number: US-ROCHE-2485210

PATIENT
  Sex: Female

DRUGS (1)
  1. TAMIFLU [Suspect]
     Active Substance: OSELTAMIVIR PHOSPHATE
     Indication: INFLUENZA
     Dosage: FOR 14 DAYS,ONGOING UNKNOWN
     Route: 048
     Dates: start: 20191122

REACTIONS (3)
  - Off label use [Unknown]
  - Intentional product misuse [Unknown]
  - Pregnancy [Unknown]
